FAERS Safety Report 13371315 (Version 1)
Quarter: 2017Q1

REPORT INFORMATION
  Report Type: Report from Study
  Country: None (occurrence: GR)
  Receive Date: 20170324
  Receipt Date: 20170324
  Transmission Date: 20170429
  Serious: Yes (Hospitalization)
  Sender: FDA-Public Use
  Company Number: GR-ABBVIE-17P-066-1865935-00

PATIENT
  Sex: Male
  Weight: 65 kg

DRUGS (3)
  1. DUODOPA [Suspect]
     Active Substance: CARBIDOPA\LEVODOPA
     Dosage: MORNING DOSE: 10.0ML; CONTINUOUS RATE: 3.4ML/H; EXTRA DOSE: 4 ML
     Route: 050
  2. CIPRALEX [Concomitant]
     Active Substance: ESCITALOPRAM OXALATE
     Indication: DEPRESSION
     Route: 048
  3. DUODOPA [Suspect]
     Active Substance: CARBIDOPA\LEVODOPA
     Indication: PARKINSON^S DISEASE
     Dosage: MORNING DOSE: 10ML; CONTINUOUS RATE: 3.8ML/H; EXTRA DOSE: 1.0ML
     Route: 050
     Dates: start: 20161205

REACTIONS (2)
  - Weight decreased [Unknown]
  - Inguinal hernia [Unknown]
